FAERS Safety Report 9090771 (Version 1)
Quarter: 2013Q1

REPORT INFORMATION
  Report Type: Report from Study
  Country: DE (occurrence: DE)
  Receive Date: 20130201
  Receipt Date: 20130201
  Transmission Date: 20140127
  Serious: Yes (Death, Other)
  Sender: FDA-Public Use
  Company Number: DE-ASTELLAS-2013US001160

PATIENT
  Sex: Male

DRUGS (4)
  1. ERLOTINIB TABLET [Suspect]
     Indication: NON-SMALL CELL LUNG CANCER
     Dosage: 150 MG, UID/QD
     Route: 048
     Dates: start: 200606, end: 200606
  2. ERLOTINIB TABLET [Suspect]
     Dosage: 100 MG, UID/QD
     Route: 048
     Dates: start: 200606, end: 200612
  3. ERLOTINIB TABLET [Suspect]
     Dosage: 150 MG, UID/QD
     Route: 048
     Dates: start: 200701, end: 200711
  4. METHOTREXATE [Concomitant]
     Indication: NON-SMALL CELL LUNG CANCER
     Dosage: 15 MG, WEEKLY
     Route: 065
     Dates: start: 200704, end: 200709

REACTIONS (5)
  - Death [Fatal]
  - Cerebrovascular accident [Unknown]
  - Metastases to meninges [Unknown]
  - Malignant neoplasm progression [Unknown]
  - Dermatitis acneiform [Unknown]
